FAERS Safety Report 8986693 (Version 1)
Quarter: 2013Q1

REPORT INFORMATION
  Report Type: Spontaneous
  Country: US (occurrence: None)
  Receive Date: 20121219
  Receipt Date: 20121219
  Transmission Date: 20140127
  Serious: No
  Sender: FDA-Public Use
  Company Number: None

PATIENT
  Sex: Female

DRUGS (1)
  1. LORAZEAPM [Suspect]
     Route: 048

REACTIONS (2)
  - Abdominal pain upper [None]
  - Wrong technique in drug usage process [None]
